FAERS Safety Report 7102529-4 (Version None)
Quarter: 2010Q4

REPORT INFORMATION
  Report Type: 
  Country: None (occurrence: None)
  Receive Date: 20101115
  Receipt Date: 20101104
  Transmission Date: 20110411
  Serious: Yes (Hospitalization)
  Sender: FDA-Public Use
  Company Number: FR-JNJFOC-20101102392

PATIENT
  Sex: Male

DRUGS (21)
  1. DURAGESIC-100 [Suspect]
     Indication: PRODUCT USED FOR UNKNOWN INDICATION
     Route: 062
  2. TRAMADOL HCL [Suspect]
     Indication: PRODUCT USED FOR UNKNOWN INDICATION
     Route: 048
  3. TRAMADOL HCL [Suspect]
     Route: 048
  4. BUFLOMEDIL [Suspect]
     Indication: ILL-DEFINED DISORDER
     Route: 048
  5. ASPEGIC 1000 [Concomitant]
     Indication: ILL-DEFINED DISORDER
     Route: 065
  6. ASPEGIC 1000 [Concomitant]
     Route: 065
  7. SECTRAL [Concomitant]
     Indication: ILL-DEFINED DISORDER
     Route: 065
  8. SECTRAL [Concomitant]
     Route: 065
  9. BRICANYL [Concomitant]
     Indication: ILL-DEFINED DISORDER
     Route: 065
  10. BRICANYL [Concomitant]
     Route: 065
  11. OMEPRAZOLE [Concomitant]
     Indication: ILL-DEFINED DISORDER
     Route: 065
  12. OMEPRAZOLE [Concomitant]
     Route: 065
  13. LYSANXIA [Concomitant]
     Indication: ILL-DEFINED DISORDER
     Route: 065
  14. LYSANXIA [Concomitant]
     Route: 065
  15. AMLOR [Concomitant]
     Indication: ILL-DEFINED DISORDER
     Route: 065
  16. ZOCOR [Concomitant]
     Indication: ILL-DEFINED DISORDER
     Route: 065
  17. DEROXAT [Concomitant]
     Indication: ILL-DEFINED DISORDER
     Route: 065
  18. ATROVENT [Concomitant]
     Indication: ILL-DEFINED DISORDER
     Route: 065
  19. ATROVENT [Concomitant]
     Route: 065
  20. EFFERALGAN [Concomitant]
     Indication: ILL-DEFINED DISORDER
     Route: 065
  21. EFFERALGAN [Concomitant]
     Route: 065

REACTIONS (2)
  - SKIN NECROSIS [None]
  - VASCULAR PURPURA [None]
